FAERS Safety Report 13236768 (Version 1)
Quarter: 2017Q1

REPORT INFORMATION
  Report Type: Report from Study
  Country: US (occurrence: US)
  Receive Date: 20170215
  Receipt Date: 20170215
  Transmission Date: 20170428
  Serious: Yes (Hospitalization)
  Sender: FDA-Public Use
  Company Number: US-TEVA-739728USA

PATIENT
  Age: 75 Year
  Sex: Male

DRUGS (3)
  1. IVIG [Suspect]
     Active Substance: HUMAN IMMUNOGLOBULIN G
     Route: 042
  2. CINQAIR [Suspect]
     Active Substance: RESLIZUMAB
     Dates: end: 20161007
  3. IRON [Suspect]
     Active Substance: IRON
     Route: 042

REACTIONS (2)
  - Fluid overload [Recovering/Resolving]
  - Drug ineffective [Unknown]

NARRATIVE: CASE EVENT DATE: 20161010
